FAERS Safety Report 15679552 (Version 1)
Quarter: 2018Q4

REPORT INFORMATION
  Report Type: Spontaneous
  Country: PL (occurrence: PL)
  Receive Date: 20181203
  Receipt Date: 20181203
  Transmission Date: 20190205
  Serious: Yes (Hospitalization, Other)
  Sender: FDA-Public Use
  Company Number: PL-TOLMAR, INC.-2018PL011955

PATIENT

DRUGS (1)
  1. ELIGARD [Suspect]
     Active Substance: LEUPROLIDE ACETATE
     Indication: PROSTATE CANCER
     Dosage: 45 MG, UNKNOWN FREQ.
     Route: 065
     Dates: start: 201810

REACTIONS (10)
  - Asthenia [Unknown]
  - Malaise [Unknown]
  - Leukocytosis [Unknown]
  - Skin lesion [Unknown]
  - Pruritus generalised [Unknown]
  - Blood potassium increased [Unknown]
  - Feeling abnormal [Unknown]
  - Blood glucose increased [Unknown]
  - Dermatitis exfoliative generalised [Unknown]
  - Generalised oedema [Unknown]

NARRATIVE: CASE EVENT DATE: 201810
